FAERS Safety Report 13821907 (Version 1)
Quarter: 2017Q3

REPORT INFORMATION
  Report Type: Spontaneous
  Country: US (occurrence: US)
  Receive Date: 20170801
  Receipt Date: 20170801
  Transmission Date: 20171127
  Serious: Yes (Other)
  Sender: FDA-Public Use
  Company Number: US-FRESENIUS KABI-FK201706349

PATIENT
  Age: 41 Year
  Sex: Female

DRUGS (2)
  1. SODIUM BICARBONATE (MANUFACTURER UNKNOWN) [Suspect]
     Active Substance: SODIUM BICARBONATE
     Indication: DIABETIC KETOACIDOSIS
     Route: 042
  2. INSULIN [Suspect]
     Active Substance: INSULIN NOS
     Indication: DIABETIC KETOACIDOSIS
     Route: 041

REACTIONS (1)
  - Hypokalaemia [Recovered/Resolved]
